FAERS Safety Report 6108462-9 (Version None)
Quarter: 2009Q1

REPORT INFORMATION
  Report Type: 
  Country: None (occurrence: None)
  Receive Date: 20090309
  Receipt Date: 20090228
  Transmission Date: 20090719
  Serious: Yes (Hospitalization)
  Sender: FDA-Public Use
  Company Number: US-B.I. PHARMACEUTICALS,INC./RIDGEFIELD-2009-BP-02503BP

PATIENT
  Sex: Female

DRUGS (6)
  1. DULCOLAX [Suspect]
     Indication: CONSTIPATION
     Dosage: 15MG
     Route: 048
     Dates: start: 20080926
  2. LIPITOR [Concomitant]
     Indication: BLOOD CHOLESTEROL INCREASED
  3. VALIUM [Concomitant]
  4. ZOLOFT [Concomitant]
  5. DIOVAN HCT [Concomitant]
     Indication: HYPERTENSION
  6. DOCUSATE SODIUM [Concomitant]

REACTIONS (4)
  - ABDOMINAL PAIN UPPER [None]
  - DRUG INEFFECTIVE [None]
  - HYPERHIDROSIS [None]
  - VOMITING [None]
